FAERS Safety Report 8733195 (Version 3)
Quarter: 2012Q4

REPORT INFORMATION
  Report Type: 
  Country: CN (occurrence: CN)
  Receive Date: 20120821
  Receipt Date: 20121130
  Transmission Date: 20130627
  Serious: Yes (Other)
  Sender: FDA-Public Use
  Company Number: CN-BRISTOL-MYERS SQUIBB COMPANY-16864902

PATIENT
  Age: 50 Year
  Sex: Male

DRUGS (1)
  1. ERBITUX SOLN FOR INF [Suspect]
     Indication: RECTAL CANCER METASTATIC
     Dosage: 8Jul12-unk 700mg
15Jul12-9Sep12 56dys 400mg
     Route: 042
     Dates: start: 20120708, end: 20120909

REACTIONS (3)
  - Blood pressure increased [Recovered/Resolved]
  - Anal abscess [Not Recovered/Not Resolved]
  - White blood cell count increased [Not Recovered/Not Resolved]
